FAERS Safety Report 23398018 (Version 1)
Quarter: 2024Q1

REPORT INFORMATION
  Report Type: Spontaneous
  Country: US (occurrence: None)
  Receive Date: 20240112
  Receipt Date: 20240112
  Transmission Date: 20240410
  Serious: Yes (Other)
  Sender: FDA-Public Use
  Company Number: None

PATIENT
  Age: 60 Year
  Sex: Female
  Weight: 57.6 kg

DRUGS (10)
  1. PAXLOVID [Suspect]
     Active Substance: NIRMATRELVIR\RITONAVIR
     Indication: COVID-19
     Dosage: 3 TABLETS TWICE A DAY ORAL
     Route: 048
     Dates: start: 20240103, end: 20240107
  2. DILTIAZEM [Concomitant]
     Active Substance: DILTIAZEM
  3. CARVEDILOL [Concomitant]
     Active Substance: CARVEDILOL
  4. ISOSORBIDE MONONITRATE [Concomitant]
     Active Substance: ISOSORBIDE MONONITRATE
  5. PLECANATIDE [Concomitant]
     Active Substance: PLECANATIDE
  6. DENOSUMAB [Concomitant]
     Active Substance: DENOSUMAB
  7. CALCIUM [Concomitant]
     Active Substance: CALCIUM
  8. VITAMINS [Concomitant]
     Active Substance: VITAMINS
  9. MIRALAX [Concomitant]
     Active Substance: POLYETHYLENE GLYCOL 3350
  10. LACTULOSE [Concomitant]
     Active Substance: LACTULOSE

REACTIONS (7)
  - SARS-CoV-2 test negative [None]
  - COVID-19 [None]
  - Oedema peripheral [None]
  - Urine output decreased [None]
  - Dehydration [None]
  - Thirst [None]
  - Blood glucose increased [None]

NARRATIVE: CASE EVENT DATE: 20240106
